FAERS Safety Report 22538082 (Version 3)
Quarter: 2023Q2

REPORT INFORMATION
  Report Type: Spontaneous
  Country: CA (occurrence: CA)
  Receive Date: 20230608
  Receipt Date: 20230628
  Transmission Date: 20230722
  Serious: Yes (Other)
  Sender: FDA-Public Use
  Company Number: CA-CELLTRION INC.-2023CA005996

PATIENT

DRUGS (7)
  1. INFLECTRA [Suspect]
     Active Substance: INFLIXIMAB-DYYB
     Indication: Crohn^s disease
     Dosage: 300 MG,Q 0, 2, 6, THEN EVERY 8 WEEKS
     Route: 042
     Dates: start: 20230227
  2. INFLECTRA [Suspect]
     Active Substance: INFLIXIMAB-DYYB
     Dosage: 300 MG,Q 0, 2, 6, THEN EVERY 8 WEEKS
     Route: 042
     Dates: start: 20230314
  3. INFLECTRA [Suspect]
     Active Substance: INFLIXIMAB-DYYB
     Dosage: 300 MG, Q 0, 2, 6, THEN EVERY 8 WEEKS
     Route: 042
     Dates: start: 20230411
  4. INFLECTRA [Suspect]
     Active Substance: INFLIXIMAB-DYYB
     Dosage: 300 MG, AFTER 8 WEEKS
     Route: 042
     Dates: start: 20230605
  5. PANTOPRAZOLE [Concomitant]
     Active Substance: PANTOPRAZOLE
     Dosage: UNK
  6. PREDNISONE [Concomitant]
     Active Substance: PREDNISONE
     Dosage: UNK
  7. STELARA [Concomitant]
     Active Substance: USTEKINUMAB
     Dosage: UNK

REACTIONS (6)
  - Crohn^s disease [Unknown]
  - Intestinal operation [Unknown]
  - Arthralgia [Recovered/Resolved]
  - Erythema nodosum [Recovered/Resolved]
  - Aphthous ulcer [Recovered/Resolved]
  - Mouth ulceration [Not Recovered/Not Resolved]

NARRATIVE: CASE EVENT DATE: 20230101
